FAERS Safety Report 7892117-4 (Version None)
Quarter: 2011Q4

REPORT INFORMATION
  Report Type: 
  Country: None (occurrence: None)
  Receive Date: 20111103
  Receipt Date: 20110815
  Transmission Date: 20120403
  Serious: No
  Sender: FDA-Public Use
  Company Number: US-AMGEN-USASP2011041264

PATIENT
  Age: 50 Year
  Sex: Female

DRUGS (1)
  1. ENBREL [Suspect]
     Indication: RHEUMATOID ARTHRITIS
     Dosage: 50 MG, QWK
     Dates: start: 20100101

REACTIONS (6)
  - JOINT SWELLING [None]
  - MUSCLE SPASMS [None]
  - ABDOMINAL DISCOMFORT [None]
  - NAUSEA [None]
  - OEDEMA PERIPHERAL [None]
  - RHEUMATOID ARTHRITIS [None]
